FAERS Safety Report 21760808 (Version 3)
Quarter: 2023Q1

REPORT INFORMATION
  Report Type: Report from Study
  Country: US (occurrence: US)
  Receive Date: 20221221
  Receipt Date: 20230106
  Transmission Date: 20230418
  Serious: Yes (Hospitalization)
  Sender: FDA-Public Use
  Company Number: US-AGIOS- 2212US03213

PATIENT
  Age: 51 Year
  Sex: Male

DRUGS (3)
  1. MITAPIVAT [Suspect]
     Active Substance: MITAPIVAT
     Indication: Anaemia of chronic disease
     Dosage: 5 MILLIGRAM, BID
     Route: 048
     Dates: start: 20220917
  2. MITAPIVAT [Suspect]
     Active Substance: MITAPIVAT
     Indication: Chronic kidney disease
  3. MITAPIVAT [Suspect]
     Active Substance: MITAPIVAT
     Indication: Thalassaemia alpha

REACTIONS (3)
  - COVID-19 [Unknown]
  - Product use issue [Unknown]
  - Off label use [Unknown]

NARRATIVE: CASE EVENT DATE: 20220917
